FAERS Safety Report 13569319 (Version 2)
Quarter: 2017Q4

REPORT INFORMATION
  Report Type: Spontaneous
  Country: FR (occurrence: FR)
  Receive Date: 20170522
  Receipt Date: 20171004
  Transmission Date: 20180320
  Serious: Yes (Hospitalization)
  Sender: FDA-Public Use
  Company Number: FR-PFIZER INC-2017213802

PATIENT
  Age: 51 Year
  Sex: Male

DRUGS (7)
  1. EFFEXOR LP [Suspect]
     Active Substance: VENLAFAXINE HYDROCHLORIDE
     Indication: DEPRESSION
     Dosage: UNK
     Route: 048
     Dates: start: 20170404, end: 20170414
  2. THERALENE [Suspect]
     Active Substance: TRIMEPRAZINE
     Indication: BIPOLAR DISORDER
     Dosage: 30 GTT, AS NEEDED
     Route: 048
     Dates: start: 20170127, end: 20170413
  3. TERCIAN /00759301/ [Suspect]
     Active Substance: CYAMEMAZINE
     Indication: BIPOLAR DISORDER
     Dosage: 25 GTT, 3X/DAY
     Route: 048
     Dates: start: 20170128, end: 20170413
  4. EFFEXOR LP [Suspect]
     Active Substance: VENLAFAXINE HYDROCHLORIDE
     Dosage: 75 MG, DAILY
     Route: 048
     Dates: start: 20170419
  5. VALIUM [Concomitant]
     Active Substance: DIAZEPAM
     Dosage: 5 MG, 4X/DAY
     Route: 048
     Dates: start: 20160101
  6. LEPTICUR [Concomitant]
     Active Substance: TROPATEPINE HYDROCHLORIDE
     Dosage: 10 MG, 2X/DAY
     Route: 048
     Dates: start: 20170411, end: 20170413
  7. DEPAKOTE [Concomitant]
     Active Substance: DIVALPROEX SODIUM
     Dosage: 1 G, 2X/DAY
     Route: 048
     Dates: start: 20160101

REACTIONS (8)
  - Cerebellar syndrome [Recovered/Resolved]
  - Overdose [Unknown]
  - Extrapyramidal disorder [Recovering/Resolving]
  - Xerosis [Unknown]
  - Pyrexia [Unknown]
  - Cardiac murmur [Unknown]
  - Breath sounds abnormal [Unknown]
  - Pneumonia [Unknown]

NARRATIVE: CASE EVENT DATE: 2017
